FAERS Safety Report 15067305 (Version 1)
Quarter: 2018Q2

REPORT INFORMATION
  Report Type: Spontaneous
  Country: US (occurrence: US)
  Receive Date: 20180606
  Receipt Date: 20180606
  Transmission Date: 20180711
  Serious: No
  Sender: FDA-Public Use
  Company Number: None

PATIENT
  Age: 50 Year
  Sex: Male

DRUGS (1)
  1. EPCLUSA [Suspect]
     Active Substance: SOFOSBUVIR\VELPATASVIR
     Dates: start: 20180606, end: 20180606

REACTIONS (3)
  - Fatigue [None]
  - Drug dose omission [None]
  - Headache [None]

NARRATIVE: CASE EVENT DATE: 20180606
